FAERS Safety Report 8002301-7 (Version None)
Quarter: 2011Q4

REPORT INFORMATION
  Report Type: 
  Country: None (occurrence: None)
  Receive Date: 20111222
  Receipt Date: 20110315
  Transmission Date: 20120403
  Serious: No
  Sender: FDA-Public Use
  Company Number: US-GLAXOSMITHKLINE-A0918253A

PATIENT
  Age: 59 Year
  Sex: Female

DRUGS (2)
  1. NICOTINE POLACRILEX [Suspect]
     Indication: EX-TOBACCO USER
     Dates: end: 20110314
  2. NICOTINE POLACRILEX [Suspect]
     Indication: EX-TOBACCO USER
     Dates: end: 20110314

REACTIONS (7)
  - FACIAL PAIN [None]
  - GINGIVAL PAIN [None]
  - EXPIRED DRUG ADMINISTERED [None]
  - HYPERSENSITIVITY [None]
  - STOMATITIS [None]
  - DRY SKIN [None]
  - ORAL PAIN [None]
